FAERS Safety Report 9669962 (Version 1)
Quarter: 2013Q4

REPORT INFORMATION
  Report Type: Spontaneous
  Country: US (occurrence: US)
  Receive Date: 20131105
  Receipt Date: 20131105
  Transmission Date: 20140711
  Serious: No
  Sender: FDA-Public Use
  Company Number: US-BAYER-2013-134307

PATIENT
  Age: 80 Year
  Sex: Male
  Weight: 95 kg

DRUGS (5)
  1. ALEVE GELCAPS [Suspect]
     Indication: ARTHRITIS
     Dosage: 2 DF, PRN
     Route: 048
  2. ALEVE GELCAPS [Suspect]
     Indication: PAIN
  3. VITAMIN C [Concomitant]
  4. FISH OIL [Concomitant]
  5. VITAMIN D [Concomitant]

REACTIONS (1)
  - Drug ineffective [None]
